FAERS Safety Report 8056456-9 (Version None)
Quarter: 2011Q4

REPORT INFORMATION
  Report Type: 
  Country: None (occurrence: None)
  Receive Date: 20111219
  Receipt Date: 20111006
  Transmission Date: 20120403
  Serious: Yes (Hospitalization)
  Sender: FDA-Public Use
  Company Number: WAES 1110USA00972

PATIENT
  Age: 69 Year
  Sex: Female

DRUGS (10)
  1. COUMADIN [Concomitant]
  2. LANTUS [Concomitant]
  3. NORVASC [Concomitant]
  4. ALLOPURINOL [Concomitant]
  5. PREDNISONE TAB [Concomitant]
  6. METOPROLOL TARTRATE [Concomitant]
  7. JANUVIA [Suspect]
     Indication: TYPE 2 DIABETES MELLITUS
     Dosage: 25 MG/DAILY/PO
     Route: 048
     Dates: start: 20110101, end: 20110701
  8. LIPITOR [Concomitant]
  9. ISOSORBIDE MONONITRATE [Concomitant]
  10. GLIPIZIDE [Concomitant]

REACTIONS (2)
  - PANCREATITIS [None]
  - PANCREATIC CYST [None]
